FAERS Safety Report 20699199 (Version 1)
Quarter: 2022Q2

REPORT INFORMATION
  Report Type: Spontaneous
  Country: US (occurrence: None)
  Receive Date: 20220411
  Receipt Date: 20220411
  Transmission Date: 20220721
  Serious: Yes (unspecified)
  Sender: FDA-Public Use
  Company Number: None

PATIENT
  Age: 63 Year
  Sex: Male

DRUGS (1)
  1. LISINOPRIL [Suspect]
     Active Substance: LISINOPRIL
     Indication: Hypertension
     Dates: start: 20210401, end: 20220210

REACTIONS (4)
  - Dysarthria [None]
  - Swollen tongue [None]
  - Oxygen saturation decreased [None]
  - Angioedema [None]

NARRATIVE: CASE EVENT DATE: 20220210
